FAERS Safety Report 24427779 (Version 2)
Quarter: 2024Q4

REPORT INFORMATION
  Report Type: Spontaneous
  Country: CA (occurrence: CA)
  Receive Date: 20241011
  Receipt Date: 20241016
  Transmission Date: 20250115
  Serious: Yes (Life-Threatening, Hospitalization, Other)
  Sender: WAYLIS THERAPEUTICS LLC
  Company Number: CA-ROCHE-2841046

PATIENT
  Age: 52 Year
  Sex: Male

DRUGS (31)
  1. DIAZEPAM [Suspect]
     Active Substance: DIAZEPAM
     Indication: Spinal stenosis
  2. DIAZEPAM [Suspect]
     Active Substance: DIAZEPAM
     Route: 048
  3. DIAZEPAM [Suspect]
     Active Substance: DIAZEPAM
     Route: 048
  4. CITALOPRAM [Suspect]
     Active Substance: CITALOPRAM
     Indication: Product used for unknown indication
     Route: 048
  5. LORAZEPAM [Suspect]
     Active Substance: LORAZEPAM
     Indication: Insomnia
     Route: 048
  6. LORAZEPAM [Suspect]
     Active Substance: LORAZEPAM
     Route: 048
  7. ALTACE [Suspect]
     Active Substance: RAMIPRIL
     Indication: Product used for unknown indication
  8. ESCITALOPRAM OXALATE [Suspect]
     Active Substance: ESCITALOPRAM OXALATE
     Indication: Depression
  9. ESCITALOPRAM OXALATE [Suspect]
     Active Substance: ESCITALOPRAM OXALATE
     Route: 048
  10. ESCITALOPRAM OXALATE [Suspect]
     Active Substance: ESCITALOPRAM OXALATE
  11. ESCITALOPRAM OXALATE [Suspect]
     Active Substance: ESCITALOPRAM OXALATE
  12. ESCITALOPRAM OXALATE [Suspect]
     Active Substance: ESCITALOPRAM OXALATE
  13. ESCITALOPRAM OXALATE [Suspect]
     Active Substance: ESCITALOPRAM OXALATE
  14. ESCITALOPRAM OXALATE [Suspect]
     Active Substance: ESCITALOPRAM OXALATE
     Route: 048
  15. ESCITALOPRAM OXALATE [Suspect]
     Active Substance: ESCITALOPRAM OXALATE
  16. ESCITALOPRAM OXALATE [Suspect]
     Active Substance: ESCITALOPRAM OXALATE
     Route: 048
  17. MORPHINE [Suspect]
     Active Substance: MORPHINE
     Indication: Spinal stenosis
  18. MORPHINE [Suspect]
     Active Substance: MORPHINE
     Indication: Depression
  19. MORPHINE [Suspect]
     Active Substance: MORPHINE
  20. MORPHINE [Suspect]
     Active Substance: MORPHINE
  21. MORPHINE [Suspect]
     Active Substance: MORPHINE
  22. MORPHINE [Suspect]
     Active Substance: MORPHINE
     Route: 048
  23. MORPHINE [Suspect]
     Active Substance: MORPHINE
  24. MORPHINE [Suspect]
     Active Substance: MORPHINE
     Route: 048
  25. OXYCODONE [Suspect]
     Active Substance: OXYCODONE
     Indication: Spinal stenosis
  26. OXYCODONE [Suspect]
     Active Substance: OXYCODONE
     Route: 048
  27. ZOPICLONE [Suspect]
     Active Substance: ZOPICLONE
     Indication: Insomnia
  28. ZOPICLONE [Suspect]
     Active Substance: ZOPICLONE
     Route: 048
  29. ZOPICLONE [Suspect]
     Active Substance: ZOPICLONE
     Route: 048
  30. ACETAMINOPHEN\OXYCODONE HYDROCHLORIDE [Interacting]
     Active Substance: ACETAMINOPHEN\OXYCODONE HYDROCHLORIDE
     Indication: Product used for unknown indication
     Route: 048
  31. ACETAMINOPHEN\OXYCODONE HYDROCHLORIDE [Interacting]
     Active Substance: ACETAMINOPHEN\OXYCODONE HYDROCHLORIDE
     Route: 048

REACTIONS (22)
  - Blood creatine phosphokinase increased [Recovered/Resolved]
  - Blood creatinine increased [Recovered/Resolved]
  - Blood potassium increased [Recovered/Resolved]
  - Blood pressure decreased [Recovered/Resolved]
  - Bradycardia [Recovered/Resolved]
  - Coma [Recovered/Resolved]
  - Coma scale abnormal [Recovered/Resolved]
  - Drug interaction [Recovered/Resolved]
  - Drug screen positive [Recovered/Resolved]
  - Electrocardiogram QT prolonged [Recovered/Resolved]
  - Electrocardiogram abnormal [Recovered/Resolved]
  - Heart rate decreased [Recovered/Resolved]
  - Hyperkalaemia [Recovered/Resolved]
  - Hypotension [Recovered/Resolved]
  - Intentional overdose [Recovered/Resolved]
  - Loss of consciousness [Recovered/Resolved]
  - Mechanical ventilation [Recovered/Resolved]
  - Opiates positive [Recovered/Resolved]
  - Overdose [Recovered/Resolved]
  - Oxygen saturation decreased [Recovered/Resolved]
  - Sinus tachycardia [Recovered/Resolved]
  - Suicide attempt [Recovered/Resolved]
